FAERS Safety Report 8995389 (Version 3)
Quarter: 2013Q2

REPORT INFORMATION
  Report Type: Spontaneous
  Country: US (occurrence: US)
  Receive Date: 20130103
  Receipt Date: 20130425
  Transmission Date: 20140414
  Serious: No
  Sender: FDA-Public Use
  Company Number: US-PFIZER INC-2013001222

PATIENT
  Age: 52 Year
  Sex: Female

DRUGS (5)
  1. CALAN SR [Suspect]
     Indication: HYPERTENSION
     Dosage: 240 MG, UNK
     Route: 048
  2. DIAZIDE [Concomitant]
     Dosage: UNK
  3. FISH OIL [Concomitant]
     Dosage: UNK
  4. PRAVASTATIN [Concomitant]
     Dosage: UNK
  5. FEXOFENADINE [Concomitant]
     Dosage: UNK

REACTIONS (1)
  - Nasopharyngitis [Unknown]
